FAERS Safety Report 23131589 (Version 1)
Quarter: 2023Q4

REPORT INFORMATION
  Report Type: Spontaneous
  Country: CN (occurrence: CN)
  Receive Date: 20231031
  Receipt Date: 20231031
  Transmission Date: 20240110
  Serious: Yes (Other)
  Sender: FDA-Public Use
  Company Number: CN-ABBVIE-5475355

PATIENT
  Sex: Female

DRUGS (1)
  1. BOTOX [Suspect]
     Active Substance: ONABOTULINUMTOXINA
     Indication: Skin cosmetic procedure
     Dosage: TIME INTERVAL: AS NECESSARY: 100 UNIT, FREQUENCY EVERY 1 DAY
     Route: 065
     Dates: start: 20230802, end: 20230802

REACTIONS (1)
  - Post procedural swelling [Recovering/Resolving]

NARRATIVE: CASE EVENT DATE: 20230802
